FAERS Safety Report 5794595-3 (Version None)
Quarter: 2008Q2

REPORT INFORMATION
  Report Type: 
  Country: None (occurrence: None)
  Receive Date: 20080625
  Receipt Date: 20080612
  Transmission Date: 20081010
  Serious: Yes (Hospitalization)
  Sender: FDA-Public Use
  Company Number: 07P-062-0423801-00

PATIENT
  Age: 10 Month
  Sex: Male

DRUGS (2)
  1. SYNAGIS [Suspect]
     Indication: IMMUNISATION
     Dosage: 1.11 ML INTRAMUSCULAR
     Route: 030
     Dates: start: 20071104
  2. SYNAGIS [Suspect]
     Indication: RESPIRATORY SYNCYTIAL VIRUS INFECTION
     Dosage: 1.11 ML INTRAMUSCULAR
     Route: 030
     Dates: start: 20071104

REACTIONS (3)
  - DECREASED APPETITE [None]
  - PYREXIA [None]
  - RESTLESSNESS [None]
